FAERS Safety Report 10165215 (Version 1)
Quarter: 2014Q2

REPORT INFORMATION
  Report Type: Spontaneous
  Country: US (occurrence: US)
  Receive Date: 20140510
  Receipt Date: 20140510
  Transmission Date: 20141212
  Serious: No
  Sender: FDA-Public Use
  Company Number: US-BRISTOL-MYERS SQUIBB COMPANY-19783414

PATIENT
  Age: 65 Year
  Sex: Male
  Weight: 77.1 kg

DRUGS (3)
  1. BYDUREON  2MG SUSPENSION [Suspect]
     Indication: TYPE 2 DIABETES MELLITUS
     Route: 058
     Dates: start: 20131103
  2. LIPITOR [Concomitant]
  3. METOPROLOL [Concomitant]

REACTIONS (3)
  - Injection site pain [Recovered/Resolved]
  - Drug ineffective [Unknown]
  - Headache [Unknown]
